FAERS Safety Report 16503621 (Version 1)
Quarter: 2019Q3

REPORT INFORMATION
  Report Type: Spontaneous
  Country: GB (occurrence: GB)
  Receive Date: 20190701
  Receipt Date: 20190701
  Transmission Date: 20191004
  Serious: Yes (Other)
  Sender: FDA-Public Use
  Company Number: GB-AMGEN-GBRSP2019100952

PATIENT
  Age: 58 Year
  Weight: 60 kg

DRUGS (3)
  1. CALCIUM + VITAMIN D [CALCIUM LACTATE;CALCIUM PHOSPHATE;COLECALCIFEROL] [Concomitant]
     Dosage: UNK
     Route: 048
  2. PROLIA [Suspect]
     Active Substance: DENOSUMAB
     Indication: OSTEOPENIA
     Dosage: 60 MILLIGRAM
     Route: 058
     Dates: start: 20190405
  3. MULTIVITAMIN [ASCORBIC ACID;CALCIUM CARBONATE;CYANOCOBALAMIN;NICOTINAM [Concomitant]
     Route: 048

REACTIONS (2)
  - Herpes zoster [Recovering/Resolving]
  - Abdominal pain [Recovering/Resolving]

NARRATIVE: CASE EVENT DATE: 20190424
